FAERS Safety Report 5963760-4 (Version None)
Quarter: 2008Q4

REPORT INFORMATION
  Report Type: 
  Country: None (occurrence: None)
  Receive Date: 20081120
  Receipt Date: 20081105
  Transmission Date: 20090506
  Serious: Yes (Hospitalization)
  Sender: FDA-Public Use
  Company Number: 2008002912

PATIENT
  Age: 60 Year
  Sex: Female

DRUGS (6)
  1. TARCEVA [Suspect]
     Indication: LUNG ADENOCARCINOMA
     Dosage: 150 MG QD ORAL
     Route: 048
     Dates: start: 20080115, end: 20080229
  2. INIPOMP (PANTOPRAZOLE) [Concomitant]
  3. OXYCODONE HCL [Concomitant]
  4. AMITRIPTYLINE HCL [Concomitant]
  5. POTASSIUM CHLORIDE [Concomitant]
  6. DEPAKINE CHRONO (TEGENYL CHRONO) [Concomitant]

REACTIONS (3)
  - HYPOXIA [None]
  - LUNG DISORDER [None]
  - PNEUMONIA [None]
